FAERS Safety Report 7641243-3 (Version None)
Quarter: 2011Q3

REPORT INFORMATION
  Report Type: 
  Country: None (occurrence: None)
  Receive Date: 20110728
  Receipt Date: 20110719
  Transmission Date: 20111222
  Serious: Yes (Hospitalization)
  Sender: FDA-Public Use
  Company Number: DE-SANOFI-AVENTIS-2011SA045835

PATIENT
  Age: 66 Year
  Sex: Female
  Weight: 60 kg

DRUGS (3)
  1. GEMCITABINE [Suspect]
     Indication: BREAST CANCER
     Route: 041
  2. DOCETAXEL [Suspect]
     Indication: BREAST CANCER
     Route: 041
     Dates: start: 20110609, end: 20110609
  3. GEMCITABINE [Suspect]
     Route: 041
     Dates: start: 20110615, end: 20110615

REACTIONS (5)
  - PANCYTOPENIA [None]
  - ANAEMIA [None]
  - DEPRESSION [None]
  - GENERAL PHYSICAL HEALTH DETERIORATION [None]
  - C-REACTIVE PROTEIN INCREASED [None]
